FAERS Safety Report 10634198 (Version 2)
Quarter: 2015Q2

REPORT INFORMATION
  Report Type: Spontaneous
  Country: US (occurrence: None)
  Receive Date: 20141203
  Receipt Date: 20150414
  Transmission Date: 20150821
  Serious: Yes (Other)
  Sender: FDA-Public Use
  Company Number: 2014SA154972

PATIENT
  Age: 53 Year
  Sex: Female

DRUGS (1)
  1. AUBAGIO [Suspect]
     Active Substance: TERIFLUNOMIDE
     Indication: MULTIPLE SCLEROSIS
     Route: 048
     Dates: start: 20141010

REACTIONS (5)
  - Musculoskeletal pain [None]
  - Oral surgery [None]
  - Diarrhoea [None]
  - Malaise [None]
  - Arthralgia [None]

NARRATIVE: CASE EVENT DATE: 20141104
